FAERS Safety Report 7786886-1 (Version None)
Quarter: 2011Q3

REPORT INFORMATION
  Report Type: 
  Country: None (occurrence: None)
  Receive Date: 20110929
  Receipt Date: 20110927
  Transmission Date: 20111222
  Serious: Yes (Other)
  Sender: FDA-Public Use
  Company Number: US-PFIZER INC-2010081106

PATIENT
  Sex: Male

DRUGS (6)
  1. SEROQUEL [Concomitant]
     Indication: DEPRESSION
     Dosage: UNK
     Dates: start: 20070901, end: 20110101
  2. TRICOR [Concomitant]
     Indication: HYPERLIPIDAEMIA
     Dosage: UNK
     Dates: start: 20071001, end: 20090701
  3. AMOXICILLIN [Concomitant]
     Indication: ANTIBIOTIC THERAPY
     Dosage: UNK
     Dates: start: 20060901, end: 20081201
  4. CHANTIX [Suspect]
     Indication: SMOKING CESSATION THERAPY
     Dosage: 0.5 MG/ 1 MG
     Dates: start: 20071001, end: 20071201
  5. CARISOPRODOL [Concomitant]
     Indication: INTERVERTEBRAL DISC DEGENERATION
     Dosage: UNK
     Dates: start: 20060501, end: 20090701
  6. HYDROCODONE [Concomitant]
     Indication: ANALGESIC THERAPY
     Dosage: UNK
     Dates: start: 20060501, end: 20110101

REACTIONS (6)
  - LOSS OF CONSCIOUSNESS [None]
  - ANXIETY [None]
  - SUICIDE ATTEMPT [None]
  - DEPRESSION [None]
  - MENTAL DISORDER [None]
  - EMOTIONAL DISTRESS [None]
